FAERS Safety Report 17466575 (Version 3)
Quarter: 2020Q1

REPORT INFORMATION
  Report Type: Spontaneous
  Country: GB (occurrence: GB)
  Receive Date: 20200227
  Receipt Date: 20200313
  Transmission Date: 20200409
  Serious: Yes (Other)
  Sender: FDA-Public Use
  Company Number: GB-ACCORD-173783

PATIENT
  Age: 90 Year
  Sex: Female

DRUGS (4)
  1. ATORVASTATIN/ATORVASTATIN CALCIUM [Suspect]
     Active Substance: ATORVASTATIN CALCIUM
     Indication: TRANSIENT ISCHAEMIC ATTACK
     Dosage: 40 MILLIGRAM, QD, EVERY NIGHT, ON DAY 92, INGREDIENT (ATORVASTATIN CALCIUM): 40MG
     Route: 065
  2. CLOPIDOGREL [Interacting]
     Active Substance: CLOPIDOGREL BISULFATE
     Indication: TRANSIENT ISCHAEMIC ATTACK
     Dosage: INGREDIENT (CLOPIDOGREL): 75MG, 75 MILLIGRAM, QD, ON DAY 20 TIA
     Route: 065
  3. NIFEDIPINE. [Interacting]
     Active Substance: NIFEDIPINE
     Indication: HYPERTENSION
     Dosage: 10 MILLIGRAM, QD, MODIFIED RELEASE, LONG-STANDING
     Route: 065
  4. ASPIRIN. [Concomitant]
     Active Substance: ASPIRIN
     Indication: PRODUCT USED FOR UNKNOWN INDICATION
     Dosage: ON DAY 0, FOLLOWED BY 75MG ONCE DAILY
     Route: 065

REACTIONS (4)
  - Drug interaction [Unknown]
  - Drug-induced liver injury [Recovered/Resolved]
  - Diverticulum intestinal [Unknown]
  - Epistaxis [Recovered/Resolved]
